FAERS Safety Report 8584566-6 (Version None)
Quarter: 2012Q3

REPORT INFORMATION
  Report Type: 
  Country: None (occurrence: None)
  Receive Date: 20120810
  Receipt Date: 20120809
  Transmission Date: 20120928
  Serious: Yes (Death, Other)
  Sender: FDA-Public Use
  Company Number: BR-ABBOTT-12P-020-0964351-00

PATIENT
  Sex: Male

DRUGS (7)
  1. HUMIRA [Suspect]
     Indication: RHEUMATOID ARTHRITIS
     Route: 058
  2. METFORMIN HYDROCHLORIDE [Concomitant]
     Indication: DIABETES MELLITUS
     Dosage: 1 TABLET DAILY
     Route: 048
  3. ATACAND [Concomitant]
     Indication: BLOOD PRESSURE
     Dosage: 1 TABLET DAILY
     Route: 048
  4. FOLIC ACID [Concomitant]
     Indication: VITAMIN SUPPLEMENTATION
     Dosage: 2 TABLETS PER WEEK
     Route: 048
  5. AMARYL [Concomitant]
     Indication: DIABETES MELLITUS
     Route: 048
  6. ATENOLOL [Concomitant]
     Indication: DEPRESSION
     Dosage: 1 TABLET DAILY
     Route: 048
  7. PRELONE [Concomitant]
     Indication: PAIN
     Dosage: 1 TABLET AS NEEDED
     Route: 048

REACTIONS (7)
  - RENAL FAILURE [None]
  - AUTOIMMUNE HEPATITIS [None]
  - CARDIAC ARREST [None]
  - MULTI-ORGAN FAILURE [None]
  - MEDICAL INDUCTION OF COMA [None]
  - PNEUMONIA BACTERIAL [None]
  - LIVER DISORDER [None]
